FAERS Safety Report 8896485 (Version 1)
Quarter: 2012Q4

REPORT INFORMATION
  Report Type: Spontaneous
  Country: US (occurrence: None)
  Receive Date: 20121107
  Receipt Date: 20121107
  Transmission Date: 20130627
  Serious: Yes (Other)
  Sender: FDA-Public Use
  Company Number: None

PATIENT
  Age: 57 Year
  Sex: Female
  Weight: 111.59 kg

DRUGS (1)
  1. LATUDA [Suspect]

REACTIONS (3)
  - Asthenia [None]
  - Feeling abnormal [None]
  - Dysarthria [None]
